FAERS Safety Report 8396220-4 (Version None)
Quarter: 2012Q2

REPORT INFORMATION
  Report Type: 
  Country: None (occurrence: None)
  Receive Date: 20120530
  Receipt Date: 20120525
  Transmission Date: 20120825
  Serious: Yes (Other)
  Sender: FDA-Public Use
  Company Number: RU-GLAXOSMITHKLINE-B0804689A

PATIENT
  Sex: Female
  Weight: 62 kg

DRUGS (2)
  1. AZITHROMYCIN [Concomitant]
     Indication: BACTERIAL INFECTION
     Dosage: 500MG PER DAY
     Route: 048
     Dates: start: 20120414, end: 20120416
  2. VALTREX [Suspect]
     Indication: GENITAL HERPES
     Dosage: 500MG PER DAY
     Route: 048
     Dates: start: 20120406

REACTIONS (2)
  - HERPES VIRUS INFECTION [None]
  - PRODUCT QUALITY ISSUE [None]
